FAERS Safety Report 10074664 (Version 3)
Quarter: 2014Q2

REPORT INFORMATION
  Report Type: Spontaneous
  Country: TR (occurrence: TR)
  Receive Date: 20140414
  Receipt Date: 20140505
  Transmission Date: 20141212
  Serious: Yes (Hospitalization, Other)
  Sender: FDA-Public Use
  Company Number: TR-ROCHE-1380568

PATIENT
  Sex: Male

DRUGS (1)
  1. LUCENTIS [Suspect]
     Indication: AGE-RELATED MACULAR DEGENERATION
     Route: 050
     Dates: start: 20140131

REACTIONS (6)
  - Anterior chamber degeneration [Unknown]
  - Vitreous disorder [Unknown]
  - Vitreous floaters [Unknown]
  - Blindness [Recovered/Resolved]
  - Endophthalmitis [Unknown]
  - Product quality issue [Unknown]
